FAERS Safety Report 11864582 (Version 1)
Quarter: 2015Q4

REPORT INFORMATION
  Report Type: Spontaneous
  Country: JP (occurrence: JP)
  Receive Date: 20151223
  Receipt Date: 20151223
  Transmission Date: 20160305
  Serious: Yes (Other)
  Sender: FDA-Public Use
  Company Number: JP-ASTRAZENECA-2015SF29520

PATIENT
  Age: 88 Year
  Sex: Male

DRUGS (2)
  1. SEROQUEL [Suspect]
     Active Substance: QUETIAPINE FUMARATE
     Indication: INSOMNIA
     Dosage: 25 MG AFTER DINNER 75 MG AT BEDTIME, TWICE DAILY
     Route: 048
  2. DUROTEP [Concomitant]
     Active Substance: FENTANYL
     Indication: PAIN

REACTIONS (4)
  - Delirium [Unknown]
  - Depressed level of consciousness [Unknown]
  - Off label use [Unknown]
  - Product use issue [Unknown]
